FAERS Safety Report 9540802 (Version 1)
Quarter: 2013Q3

REPORT INFORMATION
  Report Type: Spontaneous
  Country: CA (occurrence: CA)
  Receive Date: 20130920
  Receipt Date: 20130920
  Transmission Date: 20140515
  Serious: Yes (Hospitalization)
  Sender: FDA-Public Use
  Company Number: PHHY2013CA101384

PATIENT
  Age: 57 Year
  Sex: Female

DRUGS (3)
  1. NITROFURANTOIN [Suspect]
     Indication: URINARY TRACT INFECTION
     Dosage: 100 MG, ONCE OR TWICE DAILY
     Route: 048
  2. PREDNISONE [Suspect]
     Dosage: 20 MG, PER DAY
  3. CIPROFLOXACIN [Concomitant]
     Indication: URINARY TRACT INFECTION

REACTIONS (14)
  - Pulmonary toxicity [Unknown]
  - Interstitial lung disease [Recovered/Resolved]
  - Hepatotoxicity [Recovered/Resolved]
  - Hepatic encephalopathy [Recovered/Resolved]
  - Jaundice [Recovered/Resolved]
  - Fatigue [Recovered/Resolved]
  - Asthenia [Recovered/Resolved]
  - Chromaturia [Recovered/Resolved]
  - Pyrexia [Unknown]
  - Dyspnoea [Unknown]
  - Hepatic function abnormal [Recovered/Resolved]
  - Liver function test abnormal [Recovered/Resolved]
  - Pruritus [Unknown]
  - Drug ineffective [Unknown]
